FAERS Safety Report 21656665 (Version 2)
Quarter: 2023Q1

REPORT INFORMATION
  Report Type: Report from Study
  Country: US (occurrence: US)
  Receive Date: 20221129
  Receipt Date: 20230106
  Transmission Date: 20230418
  Serious: No
  Sender: FDA-Public Use
  Company Number: US-ABBVIE-4216545

PATIENT
  Age: 46 Year
  Sex: Male
  Weight: 85 kg

DRUGS (8)
  1. MAVYRET [Suspect]
     Active Substance: GLECAPREVIR\PIBRENTASVIR
     Indication: Chronic hepatitis C
     Dosage: 100-40MG
     Route: 048
     Dates: start: 20221102
  2. Duloxetine HCI [Concomitant]
     Indication: Product used for unknown indication
     Dosage: 30MG?DELAYED
     Route: 048
  3. CITALOPRAM HYDROBROMIDE [Concomitant]
     Active Substance: CITALOPRAM HYDROBROMIDE
     Indication: Product used for unknown indication
     Dosage: 20MG
     Route: 048
     Dates: start: 20221026
  4. Lidocaine Viscous HCl [Concomitant]
     Indication: Product used for unknown indication
     Dosage: 2 %?MOUTH/THROAT
     Route: 048
     Dates: start: 20221026
  5. Naloxone HCI [Concomitant]
     Indication: Product used for unknown indication
     Dosage: 4 MG/0.1ML
     Route: 045
     Dates: start: 20221026, end: 20221102
  6. BUPRENORPHINE HYDROCHLORIDE\NALOXONE HYDROCHLORIDE [Concomitant]
     Active Substance: BUPRENORPHINE HYDROCHLORIDE\NALOXONE HYDROCHLORIDE
     Indication: Product used for unknown indication
     Dosage: 8-2 MG
     Route: 060
     Dates: start: 20221026
  7. OMEPRAZOLE [Concomitant]
     Active Substance: OMEPRAZOLE
     Indication: Product used for unknown indication
     Dosage: 40 MG?DELAYED REL
     Route: 048
     Dates: start: 20221026
  8. BUSPIRONE HCL [Concomitant]
     Active Substance: BUSPIRONE HYDROCHLORIDE
     Indication: Product used for unknown indication
     Dosage: 15 MG
     Route: 048
     Dates: start: 20221026

REACTIONS (4)
  - Vomiting [Not Recovered/Not Resolved]
  - Headache [Not Recovered/Not Resolved]
  - Vision blurred [Not Recovered/Not Resolved]
  - Nausea [Not Recovered/Not Resolved]

NARRATIVE: CASE EVENT DATE: 20221121
